FAERS Safety Report 21176474 (Version 1)
Quarter: 2022Q3

REPORT INFORMATION
  Report Type: Spontaneous
  Country: NL (occurrence: NL)
  Receive Date: 20220805
  Receipt Date: 20220805
  Transmission Date: 20221027
  Serious: Yes (Other)
  Sender: FDA-Public Use
  Company Number: None

PATIENT
  Sex: Male
  Weight: 88.3 kg

DRUGS (10)
  1. PANTOPRAZOLE [Suspect]
     Active Substance: PANTOPRAZOLE
     Indication: Prophylaxis
     Dosage: 40 MG, QD (1X PER DAG 1 STUK)
     Route: 065
     Dates: start: 202106, end: 20220503
  2. ISOSORBIDEDINITRAAT [Concomitant]
     Indication: Product used for unknown indication
     Dosage: 30 MG
     Route: 065
  3. NIFEDIPINE [Concomitant]
     Active Substance: NIFEDIPINE
     Indication: Product used for unknown indication
     Dosage: 30 MG, TABLET MET GEREGULEERDE AFGIFTE
     Route: 065
  4. METOPROLOL SUCCINATE [Concomitant]
     Active Substance: METOPROLOL SUCCINATE
     Indication: Product used for unknown indication
     Dosage: 50 MG, TABLET MET GEREGULEERDE AFGIFTE
     Route: 065
  5. NATRIUM BICARBONAT [Concomitant]
     Indication: Product used for unknown indication
     Dosage: 500 MG
     Route: 065
  6. DOXAZOSINE MYLAN [Concomitant]
     Indication: Product used for unknown indication
     Dosage: 4 MG, TABLET MET GEREGULEERDE AFGIFTE
     Route: 065
  7. FUROSEMIDE [Concomitant]
     Active Substance: FUROSEMIDE
     Indication: Product used for unknown indication
     Dosage: 40 MG
     Route: 065
  8. CLOPIDOGREL [Concomitant]
     Active Substance: CLOPIDOGREL BISULFATE
     Indication: Product used for unknown indication
     Dosage: 75 MG
     Route: 065
  9. ELIQUIS [Concomitant]
     Active Substance: APIXABAN
     Indication: Product used for unknown indication
     Dosage: 5 MG
     Route: 065
  10. LIPITOR [Concomitant]
     Active Substance: ATORVASTATIN CALCIUM
     Indication: Product used for unknown indication
     Dosage: 20 MG
     Route: 065

REACTIONS (1)
  - Dermatitis exfoliative generalised [Recovering/Resolving]
